FAERS Safety Report 4680709-5 (Version None)
Quarter: 2005Q2

REPORT INFORMATION
  Report Type: 
  Country: None (occurrence: None)
  Receive Date: 20050601
  Receipt Date: 20050513
  Transmission Date: 20051028
  Serious: Yes (Hospitalization)
  Sender: FDA-Public Use
  Company Number: DE_050515940

PATIENT
  Sex: Male

DRUGS (1)
  1. HUMALOG [Suspect]
     Indication: DIABETES MELLITUS INSULIN-DEPENDENT
     Dates: start: 20040601

REACTIONS (6)
  - DRUG INEFFECTIVE [None]
  - HYPERGLYCAEMIA [None]
  - INFECTIOUS MONONUCLEOSIS [None]
  - KETOACIDOSIS [None]
  - NAUSEA [None]
  - VOMITING [None]
